FAERS Safety Report 8277677-6 (Version None)
Quarter: 2012Q2

REPORT INFORMATION
  Report Type: 
  Country: None (occurrence: None)
  Receive Date: 20120412
  Receipt Date: 20120330
  Transmission Date: 20120825
  Serious: Yes (Hospitalization, Other)
  Sender: FDA-Public Use
  Company Number: US-ROCHE-1038724

PATIENT
  Age: 70 Year
  Sex: Female
  Weight: 55 kg

DRUGS (3)
  1. CARBOPLATIN [Suspect]
     Indication: OVARIAN EPITHELIAL CANCER
     Dosage: AUC 6 IV ON DAY 1 CYCLE 1-6
     Route: 042
     Dates: start: 20110815
  2. PACLITAXEL [Suspect]
     Indication: OVARIAN EPITHELIAL CANCER
     Dosage: IV OVER 1 HR ON DAYS 1,8 AND 15 OF CYCLE 1 TO 6
     Route: 042
     Dates: start: 20110815
  3. AVASTIN [Suspect]
     Indication: OVARIAN EPITHELIAL CANCER
     Dosage: 15 MG/KG IV OVER 30-90 MIN ON DAY 1 OF CYCLE (CYCLE= 3 WEEKS)
     Route: 042
     Dates: start: 20110815

REACTIONS (6)
  - EMBOLISM [None]
  - VOLVULUS OF SMALL BOWEL [None]
  - LYMPHOPENIA [None]
  - WOUND INFECTION [None]
  - ANAEMIA [None]
  - PROTEINURIA [None]
